FAERS Safety Report 4790415-4 (Version None)
Quarter: 2005Q4

REPORT INFORMATION
  Report Type: 
  Country: None (occurrence: None)
  Receive Date: 20051006
  Receipt Date: 20050823
  Transmission Date: 20060501
  Serious: Yes (Life-Threatening, Hospitalization)
  Sender: FDA-Public Use
  Company Number: DE-ABBOTT-05P-062-0309295-00

PATIENT
  Sex: Male

DRUGS (12)
  1. KALETRA [Suspect]
     Indication: HIV INFECTION
     Route: 048
     Dates: start: 20050210
  2. CYCLOPHOSPHAMIDE [Suspect]
     Indication: NON-HODGKIN'S LYMPHOMA
     Route: 042
     Dates: start: 20050914
  3. DOXORUBICIN HCL [Suspect]
     Indication: NON-HODGKIN'S LYMPHOMA
     Route: 042
     Dates: start: 20050914
  4. VINCRISTINE [Suspect]
     Indication: NON-HODGKIN'S LYMPHOMA
     Route: 042
     Dates: start: 20050914
  5. SOLU-DECORTIN [Suspect]
     Indication: NON-HODGKIN'S LYMPHOMA
     Route: 042
     Dates: start: 20050914
  6. GRANISETRON  HCL [Suspect]
     Indication: PROPHYLAXIS OF NAUSEA AND VOMITING
     Dates: start: 20050914
  7. REYATAZ [Concomitant]
     Indication: HIV INFECTION
     Route: 048
     Dates: start: 20050210
  8. AMPHOTERICIN B [Concomitant]
     Indication: CANDIDIASIS
     Route: 048
     Dates: start: 20050126, end: 20050131
  9. LAXOBERAL [Concomitant]
     Indication: FLATULENCE
     Dosage: NOT REPORTED
     Route: 048
  10. IBUPROFEN LYSINATE [Concomitant]
     Indication: PAIN
     Dosage: NOT REPORTED
     Route: 048
  11. IMAZOL CREAM [Concomitant]
     Indication: SEBORRHOEIC DERMATITIS
     Dosage: NOT REPORTED
     Route: 062
     Dates: start: 20050209, end: 20050515
  12. DIPROGENTA [Concomitant]
     Indication: ECZEMA
     Dosage: NOT REPORTED
     Route: 062
     Dates: start: 20050406, end: 20050416

REACTIONS (5)
  - ABDOMINAL PAIN [None]
  - ABSCESS [None]
  - ENTERITIS [None]
  - LYMPHADENITIS [None]
  - NON-HODGKIN'S LYMPHOMA [None]
